FAERS Safety Report 22227905 (Version 1)
Quarter: 2023Q2

REPORT INFORMATION
  Report Type: Spontaneous
  Country: AU (occurrence: AU)
  Receive Date: 20230419
  Receipt Date: 20230419
  Transmission Date: 20230722
  Serious: Yes (Hospitalization)
  Sender: FDA-Public Use
  Company Number: AU-MYLANLABS-2023M1040281

PATIENT
  Age: 63 Year
  Sex: Male

DRUGS (1)
  1. DOXORUBICIN [Suspect]
     Active Substance: DOXORUBICIN
     Indication: Hepatocellular carcinoma
     Dosage: UNK, LOADED 100-300 BEAD EMBOSPHERES (TRANSARTERIAL)
     Route: 065

REACTIONS (3)
  - Cholecystitis acute [Recovering/Resolving]
  - Cholecystitis infective [Recovering/Resolving]
  - Ischaemic cholecystitis [Recovering/Resolving]
